FAERS Safety Report 15202770 (Version 1)
Quarter: 2018Q3

REPORT INFORMATION
  Report Type: Spontaneous
  Country: US (occurrence: US)
  Receive Date: 20180726
  Receipt Date: 20180726
  Transmission Date: 20181010
  Serious: Yes (Hospitalization, Other)
  Sender: FDA-Public Use
  Company Number: US-OTSUKA-2018_016899

PATIENT
  Sex: Male

DRUGS (2)
  1. ABILIFY [Suspect]
     Active Substance: ARIPIPRAZOLE
     Indication: MAJOR DEPRESSION
     Dosage: 15 MG, UNK
     Route: 065
     Dates: start: 2009, end: 2018
  2. ABILIFY [Suspect]
     Active Substance: ARIPIPRAZOLE
     Indication: ANXIETY

REACTIONS (19)
  - Shoplifting [Recovered/Resolved]
  - Compulsive shopping [Recovered/Resolved]
  - Suicidal ideation [Recovered/Resolved]
  - Theft [Recovered/Resolved]
  - Suicide attempt [Recovered/Resolved]
  - Compulsive sexual behaviour [Recovered/Resolved]
  - Sexual dysfunction [Recovered/Resolved]
  - Product use in unapproved indication [Unknown]
  - Compulsive hoarding [Recovered/Resolved]
  - Dermatillomania [Recovered/Resolved]
  - Eating disorder [Recovered/Resolved]
  - Loss of employment [Unknown]
  - Trichotillomania [Recovered/Resolved]
  - Mental disorder [Unknown]
  - Sexually transmitted disease [Unknown]
  - Obsessive-compulsive disorder [Recovered/Resolved]
  - Hypersexuality [Unknown]
  - Gambling disorder [Unknown]
  - Economic problem [Unknown]
